FAERS Safety Report 7265590-2 (Version None)
Quarter: 2011Q1

REPORT INFORMATION
  Report Type: 
  Country: None (occurrence: None)
  Receive Date: 20110131
  Receipt Date: 20101012
  Transmission Date: 20110831
  Serious: Yes (Life-Threatening, Hospitalization, Other)
  Sender: FDA-Public Use
  Company Number: US-BAYER-200939437NA

PATIENT
  Sex: Female
  Weight: 73 kg

DRUGS (19)
  1. YAZ [Suspect]
     Indication: CONTRACEPTION
     Dosage: 1 DF, QD
     Dates: start: 20070801, end: 20080810
  2. YASMIN [Suspect]
     Indication: PREMENSTRUAL SYNDROME
     Dosage: 1 DF, QD
     Dates: start: 20070801, end: 20080813
  3. SPIRONOLACTONE [Concomitant]
  4. SYNTHROID [Concomitant]
     Route: 048
  5. ZINC [Concomitant]
     Route: 048
  6. YAZ [Suspect]
     Indication: ACNE
     Dates: start: 20060801, end: 20080701
  7. YASMIN [Suspect]
     Indication: ACNE
     Route: 048
     Dates: start: 20060801, end: 20080701
  8. BIOTIN [Concomitant]
     Route: 048
  9. LEVOXYL [Concomitant]
  10. METFORMIN [Concomitant]
  11. MOTRIN [Concomitant]
     Route: 048
  12. ASA [Concomitant]
     Dosage: 81 MG/D, UNK
  13. PLAVIX [Concomitant]
     Dosage: 75 MG/D, UNK
  14. YAZ [Suspect]
     Indication: PREMENSTRUAL SYNDROME
     Dosage: UNK
     Dates: start: 20070801, end: 20080810
  15. YASMIN [Suspect]
     Indication: CONTRACEPTION
  16. DIETARY SUPPLEMENT [Concomitant]
  17. LIPITOR [Concomitant]
  18. TRIGONELLA FOENUM-GRAECUM [Concomitant]
  19. JANUVIA [Concomitant]
     Route: 048

REACTIONS (13)
  - PAIN [None]
  - EYE PAIN [None]
  - DIZZINESS [None]
  - CEREBROVASCULAR ACCIDENT [None]
  - HEMIPARESIS [None]
  - VISUAL IMPAIRMENT [None]
  - FATIGUE [None]
  - HEMICEPHALALGIA [None]
  - STRABISMUS [None]
  - DIPLOPIA [None]
  - HYPOAESTHESIA FACIAL [None]
  - EXTENSOR PLANTAR RESPONSE [None]
  - ASTHENIA [None]
